FAERS Safety Report 10136793 (Version 1)
Quarter: 2014Q2

REPORT INFORMATION
  Report Type: Spontaneous
  Country: US (occurrence: None)
  Receive Date: 20140428
  Receipt Date: 20140428
  Transmission Date: 20141212
  Serious: No
  Sender: FDA-Public Use
  Company Number: None

PATIENT
  Age: 47 Year
  Sex: Female

DRUGS (1)
  1. CIMZIA [Suspect]
     Indication: RHEUMATOID ARTHRITIS
     Dosage: INJECT 400MG UNDER THE SKIN ONCE A MONTH AS DIRECTED BY PHYSICIAN

REACTIONS (3)
  - Fungal infection [None]
  - Injection site cellulitis [None]
  - Disease recurrence [None]
